FAERS Safety Report 16649757 (Version 2)
Quarter: 2019Q4

REPORT INFORMATION
  Report Type: Report from Study
  Country: BR (occurrence: BR)
  Receive Date: 20190730
  Receipt Date: 20191203
  Transmission Date: 20200122
  Serious: Yes (Life-Threatening, Disabling, Other)
  Sender: FDA-Public Use
  Company Number: BR-BRISTOL-MYERS SQUIBB COMPANY-BMS-2019-073521

PATIENT
  Sex: Female

DRUGS (1)
  1. ABATACEPT [Suspect]
     Active Substance: ABATACEPT
     Indication: RHEUMATOID ARTHRITIS
     Dosage: 1 DOSAGE FORM= THREE 250MG VIALS
     Route: 042

REACTIONS (6)
  - Swelling [Unknown]
  - Limb mass [Unknown]
  - Gastrointestinal disorder [Unknown]
  - Coma [Recovered/Resolved]
  - Pain [Unknown]
  - Rheumatoid arthritis [Unknown]
